FAERS Safety Report 16938164 (Version 5)
Quarter: 2019Q4

REPORT INFORMATION
  Report Type: Spontaneous
  Country: CN (occurrence: CN)
  Receive Date: 20191018
  Receipt Date: 20191108
  Transmission Date: 20200122
  Serious: Yes (Hospitalization, Other)
  Sender: FDA-Public Use
  Company Number: CN-GILEAD-2019-0433468

PATIENT
  Age: 60 Year
  Sex: Male

DRUGS (1)
  1. ADEFOVIR DIPIVOXIL. [Suspect]
     Active Substance: ADEFOVIR DIPIVOXIL
     Indication: CHRONIC HEPATITIS B
     Dosage: 10 MG, PER DAY
     Route: 048
     Dates: start: 2012

REACTIONS (20)
  - Fanconi syndrome acquired [Unknown]
  - Spider naevus [Unknown]
  - Renal glycosuria [Unknown]
  - Tricuspid valve incompetence [Unknown]
  - Back pain [Unknown]
  - Musculoskeletal chest pain [Unknown]
  - Myalgia [Unknown]
  - Varices oesophageal [Unknown]
  - Renal tubular disorder [Unknown]
  - Pain [Recovered/Resolved]
  - Prostatic calcification [Unknown]
  - Muscular weakness [Unknown]
  - Proteinuria [Unknown]
  - Hepatic cirrhosis [Unknown]
  - Osteoporosis [Unknown]
  - Hypophosphataemia [Unknown]
  - Pulmonary fibrosis [Unknown]
  - Gastric varices [Unknown]
  - Mitral valve incompetence [Unknown]
  - Left ventricular dysfunction [Unknown]

NARRATIVE: CASE EVENT DATE: 2017
